FAERS Safety Report 21568814 (Version 1)
Quarter: 2022Q4

REPORT INFORMATION
  Report Type: Spontaneous
  Country: US (occurrence: US)
  Receive Date: 20221108
  Receipt Date: 20221108
  Transmission Date: 20230112
  Serious: No
  Sender: FDA-Public Use
  Company Number: US-JNJFOC-20221059338

PATIENT
  Age: 23 Year
  Sex: Female
  Weight: 117.13 kg

DRUGS (1)
  1. SPRAVATO [Suspect]
     Active Substance: ESKETAMINE
     Indication: Major depression
     Route: 065
     Dates: start: 20220801

REACTIONS (2)
  - Pain [Unknown]
  - Burning sensation [Unknown]
